FAERS Safety Report 5014128-9 (Version None)
Quarter: 2006Q2

REPORT INFORMATION
  Report Type: 
  Country: None (occurrence: None)
  Receive Date: 20060414
  Receipt Date: 20060106
  Transmission Date: 20061013
  Serious: No
  Sender: FDA-Public Use
  Company Number: 2006SP000097

PATIENT
  Age: 72 Year
  Sex: Male
  Weight: 70.3075 kg

DRUGS (9)
  1. LUNESTA [Suspect]
     Indication: INITIAL INSOMNIA
     Dosage: SEE IMAGE
     Route: 048
     Dates: start: 20051025, end: 20051028
  2. LUNESTA [Suspect]
     Indication: INITIAL INSOMNIA
     Dosage: SEE IMAGE
     Route: 048
     Dates: start: 20051029, end: 20051101
  3. CELLCEPT [Concomitant]
  4. PROGRAF [Concomitant]
  5. PREDNISONE [Concomitant]
  6. BACTRIM [Concomitant]
  7. MULTIVITAMIN [Concomitant]
  8. METOPROLOL TARTRATE [Concomitant]
  9. PANTOPRAZOLE SODIUM [Concomitant]

REACTIONS (2)
  - DRUG INEFFECTIVE [None]
  - INITIAL INSOMNIA [None]
